FAERS Safety Report 4706042-0 (Version None)
Quarter: 2005Q2

REPORT INFORMATION
  Report Type: 
  Country: None (occurrence: None)
  Receive Date: 20050204
  Receipt Date: 20050204
  Transmission Date: 20051028
  Serious: Yes (Other)
  Sender: FDA-Public Use
  Company Number: None

PATIENT
  Sex: Male
  Weight: 27.2158 kg

DRUGS (2)
  1. RITALIN [Suspect]
     Indication: ATTENTION DEFICIT/HYPERACTIVITY DISORDER
     Dosage: 20 MG PO QD   5MG 5X/DAY
     Route: 048
     Dates: start: 20040122, end: 20040225
  2. METHYLPHENIDATE HCL [Suspect]

REACTIONS (1)
  - DRUG EFFECT DECREASED [None]
